FAERS Safety Report 10391901 (Version 2)
Quarter: 2014Q3

REPORT INFORMATION
  Report Type: Report from Study
  Country: TW (occurrence: TW)
  Receive Date: 20140819
  Receipt Date: 20140819
  Transmission Date: 20150326
  Serious: Yes (Death, Hospitalization, Other)
  Sender: FDA-Public Use
  Company Number: PHHY2012TW108647

PATIENT
  Age: 70 Year
  Sex: Male
  Weight: 65 kg

DRUGS (65)
  1. KCL [Concomitant]
     Active Substance: POTASSIUM CHLORIDE
     Dosage: 10 ML, UNK
     Dates: start: 20130219
  2. CHLORPHENIRAMIN [Concomitant]
     Dosage: 1 DF, UNK
     Route: 042
     Dates: start: 20130215, end: 20130215
  3. ROLIKAN [Concomitant]
     Dosage: 250 ML, UNK
     Dates: start: 20130217
  4. KETOROLAC [Concomitant]
     Active Substance: KETOROLAC\KETOROLAC TROMETHAMINE
     Dosage: 0.5 DF, UNK
     Dates: start: 20130217, end: 20130217
  5. PARMASON [Concomitant]
     Dosage: 1 DF, UNK
     Dates: start: 20130216
  6. VITAMIN K1 [Concomitant]
     Active Substance: PHYTONADIONE
     Dosage: 1 DF, UNK
     Dates: start: 20130215, end: 20130218
  7. VETERIN [Concomitant]
     Dosage: 1000 MG, UNK
     Dates: start: 20130213, end: 20130215
  8. SODIUM BICARBONATE. [Concomitant]
     Active Substance: SODIUM BICARBONATE
     Dosage: 80 ML, UNK
     Dates: start: 20130220
  9. PLASBUMIN [Concomitant]
     Active Substance: ALBUMIN (HUMAN)
     Dosage: 50 ML, UNK
     Dates: start: 20130216, end: 20130219
  10. AMIODARONE [Concomitant]
     Active Substance: AMIODARONE
     Dosage: 900 MG, UNK
     Dates: start: 20130217, end: 20130217
  11. SOLU-CORTEF [Concomitant]
     Active Substance: HYDROCORTISONE SODIUM SUCCINATE
     Dosage: 100 MG, UNK
     Dates: start: 20130215, end: 20130215
  12. FUROSEMIDE. [Concomitant]
     Active Substance: FUROSEMIDE
     Dosage: 20 MG, BID
     Dates: start: 20130213, end: 20130213
  13. FUROSEMIDE. [Concomitant]
     Active Substance: FUROSEMIDE
     Dosage: 5 MG, UNK
     Dates: start: 20130215, end: 20130216
  14. FUROSEMIDE. [Concomitant]
     Active Substance: FUROSEMIDE
     Dosage: 10 MG, UNK
     Dates: start: 20130216, end: 20130216
  15. TRANSAMIN [Concomitant]
     Active Substance: TRANEXAMIC ACID
     Dosage: 1 DF, UNK
     Dates: start: 20130215, end: 20130218
  16. CERTICAN [Suspect]
     Active Substance: EVEROLIMUS
     Indication: IMMUNOSUPPRESSION
     Dosage: 1 MG, DAILY
     Route: 048
     Dates: start: 20120201, end: 20130206
  17. TRANEXAMIC ACID. [Concomitant]
     Active Substance: TRANEXAMIC ACID
     Dosage: 750 MG, UNK
     Route: 048
     Dates: start: 20130206
  18. AMIODARONE [Concomitant]
     Active Substance: AMIODARONE
     Dosage: 750 MG, UNK
     Dates: start: 20130219, end: 20130219
  19. TAZOCIN [Concomitant]
     Active Substance: PIPERACILLIN SODIUM\TAZOBACTAM SODIUM
     Dosage: 1 DF, UNK
     Dates: start: 20130217, end: 20130218
  20. DOPAMIN [Concomitant]
     Dosage: 400 MG, UNK
     Dates: start: 20130216
  21. FUROSEMIDE. [Concomitant]
     Active Substance: FUROSEMIDE
     Dosage: 10 MG, UNK
     Dates: start: 20130214, end: 20130214
  22. PRIMPERAN [Concomitant]
     Active Substance: METOCLOPRAMIDE HYDROCHLORIDE
     Dosage: 10 MG, UNK
     Dates: start: 20130215, end: 20130215
  23. EVAC [Concomitant]
     Dosage: 1 DF, UNK
     Dates: start: 20130214, end: 20130214
  24. SODIUM BICARBONATE. [Concomitant]
     Active Substance: SODIUM BICARBONATE
     Dosage: 20 ML, UNK
     Dates: start: 20130216, end: 20130217
  25. AMIODARONE [Concomitant]
     Active Substance: AMIODARONE
     Dosage: 150 MG, (2 TIMES)
     Dates: start: 20130217, end: 20130217
  26. PANTOPRAZOLE [Concomitant]
     Active Substance: PANTOPRAZOLE SODIUM
     Dosage: 1 DF, UNK
     Dates: start: 20130218, end: 20130218
  27. MIDAZOLAM [Concomitant]
     Active Substance: MIDAZOLAM\MIDAZOLAM HYDROCHLORIDE
     Dosage: 10 DF, UNK
     Dates: start: 20130216
  28. SENOKOT//SENNOSIDE A+B [Concomitant]
     Dosage: 2 DF, UNK
     Route: 048
     Dates: start: 20130213, end: 20130216
  29. MORIAMIN SN [Concomitant]
     Dosage: 200 ML, UNK
     Dates: start: 20130213, end: 20130217
  30. CERTICAN [Suspect]
     Active Substance: EVEROLIMUS
     Indication: RENAL TRANSPLANT
  31. ACETAMINOPHEN. [Concomitant]
     Active Substance: ACETAMINOPHEN
     Dosage: 1500 MG, UNK
     Route: 048
     Dates: start: 20130206
  32. ERTAPENEM [Concomitant]
     Active Substance: ERTAPENEM
     Dosage: 1 DF, UNK
     Route: 065
     Dates: start: 20130219
  33. SALINE [Concomitant]
     Active Substance: SODIUM CHLORIDE
     Dosage: 2760 ML, UNK
     Dates: start: 20130217
  34. LEVOPHED [Concomitant]
     Active Substance: NOREPINEPHRINE BITARTRATE
     Dosage: 4 DF, UNK
     Dates: start: 20130217
  35. ACETAMINOPHEN. [Concomitant]
     Active Substance: ACETAMINOPHEN
     Dosage: 1 DF, UNK
     Route: 048
     Dates: start: 20130213, end: 20130215
  36. SODIUM BICARBONATE. [Concomitant]
     Active Substance: SODIUM BICARBONATE
     Dosage: 80 ML, UNK
     Dates: start: 20130215, end: 20130215
  37. SODIUM BICARBONATE. [Concomitant]
     Active Substance: SODIUM BICARBONATE
     Dosage: 20 ML, UNK
     Dates: start: 20130217, end: 20130217
  38. SODIUM BICARBONATE. [Concomitant]
     Active Substance: SODIUM BICARBONATE
     Dosage: 100 ML, UNK
     Dates: start: 20130217, end: 20130217
  39. SODIUM BICARBONATE. [Concomitant]
     Active Substance: SODIUM BICARBONATE
     Dosage: 200 ML, UNK
     Dates: start: 20130218, end: 20130218
  40. SODIUM BICARBONATE. [Concomitant]
     Active Substance: SODIUM BICARBONATE
     Dosage: 100 ML, UNK ( 2 TIMES)
     Dates: start: 20130218, end: 20130218
  41. CHLORPHENIRAMIN [Concomitant]
     Dosage: 1 DF, UNK
     Route: 042
     Dates: start: 20130213, end: 20130213
  42. CHLORPHENIRAMIN [Concomitant]
     Dosage: 1 DF, UNK
     Route: 042
     Dates: start: 20130216, end: 20130216
  43. CHLORPHENIRAMIN [Concomitant]
     Dosage: 2 DF, UNK
     Route: 042
     Dates: start: 20130219, end: 20130219
  44. AMIODARONE [Concomitant]
     Active Substance: AMIODARONE
     Dosage: 720 MG, UNK
     Dates: start: 20130218, end: 20130219
  45. SOLU-CORTEF [Concomitant]
     Active Substance: HYDROCORTISONE SODIUM SUCCINATE
     Dosage: 50 MG, UNK
     Dates: start: 20130217
  46. PETHIDINE [Concomitant]
     Active Substance: MEPERIDINE
     Dosage: 20 MG, UNK
     Route: 042
     Dates: start: 20130215, end: 20130215
  47. KALIMATE [Concomitant]
     Active Substance: POLYSTYRENE SULFONIC ACID
     Dosage: 2 DF, UNK
     Route: 048
     Dates: start: 20130213, end: 20130215
  48. CHLORPHENIRAMIN [Concomitant]
     Dosage: 1 DF, UNK
     Dates: start: 20130214, end: 20130214
  49. TAZOCIN [Concomitant]
     Active Substance: PIPERACILLIN SODIUM\TAZOBACTAM SODIUM
     Dosage: 1 DF, UNK
     Dates: start: 20130218, end: 20130218
  50. TRACRIUM [Concomitant]
     Active Substance: ATRACURIUM BESYLATE
     Dosage: 10 DF, UNK
     Dates: start: 20130217
  51. KETOROLAC [Concomitant]
     Active Substance: KETOROLAC\KETOROLAC TROMETHAMINE
     Dosage: 0.5 DF, UNK
     Dates: start: 20130215, end: 20130215
  52. VOLUVEN [Concomitant]
     Active Substance: HYDROXYETHYL STARCH 130/0.4
     Dosage: 500 ML, UNK
     Dates: start: 20130216
  53. GELOFUSINE//SUCCINYLATED GELATIN [Concomitant]
     Dosage: 1 DF, UNK
     Dates: start: 20130216
  54. CEFOXITIN [Concomitant]
     Active Substance: CEFOXITIN\CEFOXITIN SODIUM
     Dosage: 1 G, UNK
     Dates: start: 20130215, end: 20130216
  55. NACL [Concomitant]
     Active Substance: SODIUM CHLORIDE
     Dosage: 500 ML, UNK
     Dates: start: 20130213, end: 20130213
  56. ADRENALINE [Concomitant]
     Active Substance: EPINEPHRINE
     Dosage: 4 DF, UNK
     Dates: start: 20130219
  57. ADRENALINE [Concomitant]
     Active Substance: EPINEPHRINE
     Dosage: 2 DF, UNK
     Dates: start: 20130220
  58. PITRESSIN [Concomitant]
     Active Substance: VASOPRESSIN
     Dosage: 1 DF, UNK
     Dates: start: 20130220
  59. SODIUM BICARBONATE. [Concomitant]
     Active Substance: SODIUM BICARBONATE
     Dosage: 160 ML, UNK
     Dates: start: 20130219, end: 20130219
  60. PLASBUMIN [Concomitant]
     Active Substance: ALBUMIN (HUMAN)
     Dosage: 50 ML, UNK
     Dates: start: 20130219
  61. KCL [Concomitant]
     Active Substance: POTASSIUM CHLORIDE
     Dosage: 5 ML, UNK
     Dates: start: 20130217, end: 20130217
  62. PANTOPRAZOLE [Concomitant]
     Active Substance: PANTOPRAZOLE SODIUM
     Dosage: 1 DF, UNK
     Dates: start: 20130215, end: 20130218
  63. CRAVIT [Concomitant]
     Active Substance: LEVOFLOXACIN
     Dosage: 500 MG, UNK
     Dates: start: 20130216
  64. TRANSAMIN [Concomitant]
     Active Substance: TRANEXAMIC ACID
     Dosage: 1 DF, UNK
     Dates: start: 20130214, end: 20130214
  65. NACL [Concomitant]
     Active Substance: SODIUM CHLORIDE
     Dosage: 500 ML, UNK
     Dates: start: 20130215, end: 20130215

REACTIONS (20)
  - Bladder transitional cell carcinoma recurrent [Recovered/Resolved with Sequelae]
  - White blood cell count increased [Unknown]
  - Blood calcium increased [Unknown]
  - Blood pressure decreased [Unknown]
  - Aspartate aminotransferase increased [Unknown]
  - Lymphocyte count decreased [Unknown]
  - Blood bilirubin increased [Unknown]
  - Dyspnoea [Unknown]
  - Blood chloride increased [Recovered/Resolved with Sequelae]
  - Blood glucose increased [Recovered/Resolved with Sequelae]
  - Alanine aminotransferase increased [Unknown]
  - Blood potassium decreased [Unknown]
  - Septic shock [Unknown]
  - Haematuria [Not Recovered/Not Resolved]
  - Blood alkaline phosphatase increased [Unknown]
  - Blood albumin decreased [Unknown]
  - Bladder cancer recurrent [Fatal]
  - Incontinence [Unknown]
  - Anaemia [Recovering/Resolving]
  - Neutrophil count increased [Unknown]

NARRATIVE: CASE EVENT DATE: 20120208
